FAERS Safety Report 6602734-7 (Version None)
Quarter: 2010Q1

REPORT INFORMATION
  Report Type: 
  Country: None (occurrence: None)
  Receive Date: 20100218
  Receipt Date: 20100215
  Transmission Date: 20100710
  Serious: Yes (Death, Hospitalization, Other)
  Sender: FDA-Public Use
  Company Number: 2010SP007540

PATIENT
  Age: 66 Year
  Sex: Female

DRUGS (6)
  1. TEMODAL [Suspect]
     Indication: GLIOBLASTOMA
     Dosage: 100 MG;PO
     Route: 048
     Dates: start: 20091201, end: 20100105
  2. KEPPRA [Suspect]
     Indication: DRUG USE FOR UNKNOWN INDICATION
     Dosage: 500 MG;PO
     Route: 048
     Dates: start: 20091201, end: 20100105
  3. BACTRIM [Suspect]
     Indication: DRUG USE FOR UNKNOWN INDICATION
     Dosage: PO
     Route: 048
     Dates: start: 20091201, end: 20100105
  4. HUMULIN R [Concomitant]
  5. NAPRILENE [Concomitant]
  6. MEPRAL [Concomitant]

REACTIONS (8)
  - AREFLEXIA [None]
  - COMA [None]
  - EPISTAXIS [None]
  - GENERAL PHYSICAL HEALTH DETERIORATION [None]
  - HAEMATOMA [None]
  - MIOSIS [None]
  - PANCYTOPENIA [None]
  - PETECHIAE [None]
